FAERS Safety Report 4482250-1 (Version None)
Quarter: 2004Q4

REPORT INFORMATION
  Report Type: 
  Country: None (occurrence: None)
  Receive Date: 20041020
  Receipt Date: 20040923
  Transmission Date: 20050328
  Serious: Yes (Hospitalization, Other)
  Sender: FDA-Public Use
  Company Number: USA040978840

PATIENT
  Age: 69 Year
  Sex: Female
  Weight: 102 kg

DRUGS (12)
  1. EVISTA [Suspect]
     Indication: OSTEOPOROSIS
     Dosage: 60 MG/1 DAY
     Dates: start: 20020101, end: 20040914
  2. FORTEO [Suspect]
     Indication: OSTEOPOROSIS
     Dosage: 2 UG/1 DAY
     Dates: start: 20040714
  3. DILTIAZEM [Concomitant]
  4. LEXAPRO [Concomitant]
  5. CELEBREX [Concomitant]
  6. LASIX [Concomitant]
  7. ACIPHEX [Concomitant]
  8. CALCIUM [Concomitant]
  9. FLEXERIL [Concomitant]
  10. PHENERGAN [Concomitant]
  11. MIACALCIN [Concomitant]
  12. LEVOTHYROXINE SODIUM [Concomitant]

REACTIONS (14)
  - ABDOMINAL DISTENSION [None]
  - ASTHENIA [None]
  - ATRIAL FIBRILLATION [None]
  - ERYTHEMA [None]
  - GALLBLADDER OPERATION [None]
  - HOT FLUSH [None]
  - HYPERHIDROSIS [None]
  - JOINT SWELLING [None]
  - NAUSEA [None]
  - PHARMACEUTICAL PRODUCT COMPLAINT [None]
  - PNEUMONIA [None]
  - PULMONARY OEDEMA [None]
  - SPINAL COMPRESSION FRACTURE [None]
  - VOMITING [None]
